FAERS Safety Report 22632020 (Version 2)
Quarter: 2023Q2

REPORT INFORMATION
  Report Type: Report from Study
  Country: US (occurrence: US)
  Receive Date: 20230623
  Receipt Date: 20230623
  Transmission Date: 20230721
  Serious: No
  Sender: FDA-Public Use
  Company Number: US-002147023-NVSC2023US139960

PATIENT
  Sex: Female

DRUGS (14)
  1. COSENTYX [Suspect]
     Active Substance: SECUKINUMAB
     Indication: Psoriasis
     Dosage: 300 MG
     Route: 058
     Dates: start: 20200206, end: 20200824
  2. COSENTYX [Suspect]
     Active Substance: SECUKINUMAB
     Dosage: 300 MG
     Route: 058
     Dates: start: 20210426
  3. BETAMETHASONE VALERATE [Suspect]
     Active Substance: BETAMETHASONE VALERATE
     Indication: Psoriasis
     Dosage: UNK
     Route: 065
  4. CICLOPIROX [Suspect]
     Active Substance: CICLOPIROX
     Indication: Psoriasis
     Dosage: UNK
     Route: 065
  5. CLOBETASOL [Suspect]
     Active Substance: CLOBETASOL
     Indication: Psoriasis
     Route: 065
  6. DESOXIMETASONE [Suspect]
     Active Substance: DESOXIMETASONE
     Indication: Psoriasis
     Dosage: UNK
     Route: 065
  7. HALOBETASOL PROPIONATE [Suspect]
     Active Substance: HALOBETASOL PROPIONATE
     Indication: Psoriasis
     Route: 065
  8. KETOCONAZOLE [Suspect]
     Active Substance: KETOCONAZOLE
     Indication: Psoriasis
     Route: 065
  9. TRIAMCINOLONE [Suspect]
     Active Substance: TRIAMCINOLONE
     Indication: Psoriasis
     Route: 065
  10. ATENOLOL [Suspect]
     Active Substance: ATENOLOL
     Indication: Psoriasis
     Dosage: UNK
     Route: 065
  11. HYDROCHLOROTHIAZIDE [Suspect]
     Active Substance: HYDROCHLOROTHIAZIDE
     Indication: Psoriasis
     Dosage: UNK
     Route: 065
  12. CLOBETASOL [Suspect]
     Active Substance: CLOBETASOL
     Indication: Psoriasis
     Dosage: UNK
     Route: 065
  13. HYDROXYZINE [Suspect]
     Active Substance: HYDROXYZINE HYDROCHLORIDE
     Indication: Psoriasis
     Dosage: UNK
     Route: 065
  14. VITAMIN D3 [Suspect]
     Active Substance: CHOLECALCIFEROL
     Indication: Psoriasis
     Route: 065

REACTIONS (9)
  - Dyshidrotic eczema [Unknown]
  - Agitation [Unknown]
  - Psoriasis [Unknown]
  - Rash [Recovering/Resolving]
  - Skin discolouration [Recovering/Resolving]
  - Rash erythematous [Unknown]
  - Pruritus [Unknown]
  - Pain of skin [Unknown]
  - Product use in unapproved indication [Unknown]
